FAERS Safety Report 22048939 (Version 1)
Quarter: 2023Q1

REPORT INFORMATION
  Report Type: Spontaneous
  Country: FR (occurrence: FR)
  Receive Date: 20230301
  Receipt Date: 20230301
  Transmission Date: 20230418
  Serious: Yes (Life-Threatening)
  Sender: FDA-Public Use
  Company Number: None

PATIENT
  Age: 73 Year
  Sex: Male

DRUGS (9)
  1. AMLODIPINE [Suspect]
     Active Substance: AMLODIPINE BESYLATE
     Indication: Essential hypertension
     Dosage: 5 MG,QD
     Route: 048
     Dates: end: 20221227
  2. CLOPIDOGREL [Suspect]
     Active Substance: CLOPIDOGREL BISULFATE
     Indication: Arteriosclerosis
     Dosage: 75 MG,QD
     Route: 048
     Dates: end: 20221227
  3. ATENOLOL [Suspect]
     Active Substance: ATENOLOL
     Indication: Ventricular extrasystoles
     Dosage: 50 MG,QD
     Route: 048
     Dates: end: 20221227
  4. RILMENIDINE [Suspect]
     Active Substance: RILMENIDINE
     Indication: Essential hypertension
     Dosage: 1 MG,QD
     Route: 048
     Dates: end: 20221227
  5. METFORMIN HYDROCHLORIDE [Suspect]
     Active Substance: METFORMIN HYDROCHLORIDE
     Indication: Type 2 diabetes mellitus
     Dosage: UNK
     Route: 048
     Dates: end: 20221227
  6. IRBESARTAN [Suspect]
     Active Substance: IRBESARTAN
     Indication: Essential hypertension
     Dosage: UNK
     Route: 048
     Dates: end: 20221227
  7. ASPIRIN [Suspect]
     Active Substance: ASPIRIN
     Indication: Arteriosclerosis
     Dosage: 100 MG,QD
     Route: 048
     Dates: end: 20221227
  8. HYDROCHLOROTHIAZIDE [Suspect]
     Active Substance: HYDROCHLOROTHIAZIDE
     Indication: Essential hypertension
     Dosage: UNK
     Route: 048
     Dates: end: 20221227
  9. LATANOPROST [Concomitant]
     Active Substance: LATANOPROST
     Indication: Product used for unknown indication
     Dosage: UNK
     Route: 065

REACTIONS (2)
  - Status epilepticus [Recovered/Resolved with Sequelae]
  - Intracranial haematoma [Recovering/Resolving]

NARRATIVE: CASE EVENT DATE: 20221226
